FAERS Safety Report 11462265 (Version 2)
Quarter: 2015Q3

REPORT INFORMATION
  Report Type: Spontaneous
  Country: US (occurrence: US)
  Receive Date: 20150831
  Receipt Date: 20150903
  Transmission Date: 20151125
  Serious: No
  Sender: FDA-Public Use
  Company Number: US-ELI_LILLY_AND_COMPANY-US201010005333

PATIENT
  Age: 84 Year
  Sex: Female

DRUGS (8)
  1. HUMALOG [Suspect]
     Active Substance: INSULIN LISPRO
     Indication: DIABETES MELLITUS
     Dosage: 1 D/F, 3/D
  2. THYROXINE [Concomitant]
     Active Substance: LEVOTHYROXINE
  3. LASIX [Concomitant]
     Active Substance: FUROSEMIDE
  4. CYMBALTA [Suspect]
     Active Substance: DULOXETINE HYDROCHLORIDE
     Dosage: 30 MG, DAILY (1/D)
  5. LANTUS [Concomitant]
     Active Substance: INSULIN GLARGINE
     Dosage: 48 U, 2/D
  6. CYMBALTA [Suspect]
     Active Substance: DULOXETINE HYDROCHLORIDE
     Indication: DEPRESSION
     Dosage: 60 MG, DAILY (1/D)
  7. AVANDIA [Concomitant]
     Active Substance: ROSIGLITAZONE MALEATE
  8. GLUCOPHAGE /USA/ [Concomitant]

REACTIONS (2)
  - Diabetes mellitus [Not Recovered/Not Resolved]
  - Renal disorder [Unknown]
